FAERS Safety Report 7668160-7 (Version None)
Quarter: 2011Q3

REPORT INFORMATION
  Report Type: 
  Country: None (occurrence: None)
  Receive Date: 20110808
  Receipt Date: 20110802
  Transmission Date: 20111222
  Serious: Yes (Other)
  Sender: FDA-Public Use
  Company Number: US-PFIZER INC-2011177029

PATIENT
  Age: 58 Year
  Sex: Female
  Weight: 77.098 kg

DRUGS (6)
  1. ULTRAM [Suspect]
     Indication: PAIN
     Dosage: UNK
     Dates: end: 20110701
  2. ETODOLAC [Suspect]
     Indication: ANTIINFLAMMATORY THERAPY
     Dosage: 200 MG, UNK
     Dates: end: 20110701
  3. PREMARIN [Suspect]
     Dosage: 0.625 MG, UNK
  4. PREMARIN [Suspect]
     Dosage: 0.3 MG, UNK
  5. ADVIL LIQUI-GELS [Suspect]
     Indication: PAIN
     Dosage: UNK
     Dates: end: 20110730
  6. PREMARIN [Suspect]
     Indication: VULVOVAGINAL DRYNESS
     Dosage: 0.625 MG, UNK

REACTIONS (5)
  - RASH PRURITIC [None]
  - URTICARIA [None]
  - RASH ERYTHEMATOUS [None]
  - DYSPNOEA [None]
  - DIABETES MELLITUS [None]
